FAERS Safety Report 8346417 (Version 7)
Quarter: 2013Q1

REPORT INFORMATION
  Report Type: Spontaneous
  Country: US (occurrence: US)
  Receive Date: 20120120
  Receipt Date: 20130208
  Transmission Date: 20140127
  Serious: Yes (Hospitalization, Other)
  Sender: FDA-Public Use
  Company Number: US-009507513-1201USA02556

PATIENT
  Sex: Female
  Weight: 64.4 kg

DRUGS (7)
  1. FOSAMAX [Suspect]
     Indication: OSTEOPOROSIS
     Dosage: 10 MG, UNK
     Route: 048
     Dates: start: 19980422
  2. FOSAMAX [Suspect]
     Dosage: 70 MG, UNK
     Route: 048
     Dates: start: 20010920
  3. FOSAMAX [Suspect]
     Dosage: UNK, QW
     Route: 048
     Dates: start: 1998, end: 2005
  4. FOSAMAX [Suspect]
     Indication: OSTEOPOROSIS
     Dosage: UNK
     Route: 048
     Dates: start: 2010, end: 2010
  5. ALENDRONATE SODIUM [Suspect]
     Dosage: 70 MG, UNK
     Dates: start: 20100603
  6. VITAMIN D (UNSPECIFIED) [Concomitant]
     Dosage: 2000 IU, QD
     Route: 048
     Dates: start: 2005
  7. CALCIUM (UNSPECIFIED) [Concomitant]
     Dosage: 630 MG, BID
     Dates: start: 2005

REACTIONS (41)
  - Breast cancer [Unknown]
  - Breast cancer [Unknown]
  - Surgery [Recovering/Resolving]
  - Respiratory failure [Unknown]
  - Femur fracture [Recovered/Resolved]
  - Femur fracture [Unknown]
  - Fall [Unknown]
  - Tooth disorder [Unknown]
  - Tooth extraction [Unknown]
  - Adverse event [Unknown]
  - Sleep apnoea syndrome [Unknown]
  - Intervertebral disc degeneration [Unknown]
  - Hypertension [Unknown]
  - Type V hyperlipidaemia [Unknown]
  - Hypoxia [Unknown]
  - Sedation [Unknown]
  - Pneumonia [Unknown]
  - Anaemia [Unknown]
  - Soft tissue injury [Unknown]
  - Impaired healing [Unknown]
  - Breast abscess [Unknown]
  - Hypophosphatasia [Unknown]
  - Cardiac murmur [Unknown]
  - Macular degeneration [Unknown]
  - Anxiety [Unknown]
  - Arthropathy [Unknown]
  - Colon adenoma [Unknown]
  - Spinal osteoarthritis [Not Recovered/Not Resolved]
  - Spinal osteoarthritis [Unknown]
  - Local swelling [Unknown]
  - Intestinal polyp [Unknown]
  - Fall [Unknown]
  - Cyst [Unknown]
  - Hand fracture [Unknown]
  - Osteoporosis [Unknown]
  - Osteopenia [Unknown]
  - Back pain [Unknown]
  - Osteoarthritis [Unknown]
  - Joint dislocation [Unknown]
  - Foot fracture [Unknown]
  - Osteoarthritis [Unknown]
